FAERS Safety Report 8776298 (Version 1)
Quarter: 2012Q4

REPORT INFORMATION
  Report Type: 
  Country: US (occurrence: US)
  Receive Date: 20120910
  Receipt Date: 20120910
  Transmission Date: 20130627
  Serious: No
  Sender: FDA-Public Use
  Company Number: US-B.I. PHARMACEUTICALS,INC./RIDGEFIELD-2012-BP-21463BP

PATIENT
  Age: 81 Year
  Sex: Male

DRUGS (11)
  1. SPIRIVA [Suspect]
     Indication: CHRONIC OBSTRUCTIVE PULMONARY DISEASE
     Dosage: 18 mcg
     Route: 055
     Dates: start: 201204
  2. SPIRIVA [Suspect]
     Route: 048
     Dates: start: 20120904, end: 20120904
  3. PRADAXA [Concomitant]
  4. DIGOXIN [Concomitant]
  5. SIMVASTATIN [Concomitant]
  6. BABY ASPIRIN [Concomitant]
  7. CALCIUM [Concomitant]
  8. FUROSEMIDE [Concomitant]
  9. CARDIZEM [Concomitant]
  10. KLOR CON [Concomitant]
  11. MUCINEX [Concomitant]

REACTIONS (1)
  - Incorrect route of drug administration [Recovered/Resolved]
